FAERS Safety Report 5591286-9 (Version None)
Quarter: 2008Q1

REPORT INFORMATION
  Report Type: 
  Country: None (occurrence: None)
  Receive Date: 20080115
  Receipt Date: 20080102
  Transmission Date: 20080703
  Serious: Yes (Other)
  Sender: FDA-Public Use
  Company Number: US-BAYER-200712337BWH

PATIENT
  Age: 62 Year
  Sex: Female
  Weight: 79 kg

DRUGS (3)
  1. NEXAVAR [Suspect]
     Indication: RENAL CELL CARCINOMA
     Dosage: TOTAL DAILY DOSE: 800 MG  UNIT DOSE: 200 MG
     Route: 048
     Dates: start: 20070501, end: 20070101
  2. NEXAVAR [Suspect]
     Route: 048
     Dates: start: 20070101
  3. NEXAVAR [Suspect]
     Dosage: TOTAL DAILY DOSE: 800 MG  UNIT DOSE: 200 MG
     Route: 048
     Dates: start: 20070101

REACTIONS (5)
  - ALOPECIA [None]
  - ARTHRALGIA [None]
  - DIARRHOEA [None]
  - RENAL CELL CARCINOMA [None]
  - WEIGHT DECREASED [None]
